FAERS Safety Report 7930502-2 (Version None)
Quarter: 2011Q4

REPORT INFORMATION
  Report Type: 
  Country: None (occurrence: None)
  Receive Date: 20111121
  Receipt Date: 20100322
  Transmission Date: 20120403
  Serious: Yes (Hospitalization, Other)
  Sender: FDA-Public Use
  Company Number: PHHY2010TW17633

PATIENT
  Sex: Female

DRUGS (3)
  1. GLEEVEC [Suspect]
     Dosage: 400 MG, DAILY
     Route: 048
     Dates: start: 20091015
  2. GLEEVEC [Suspect]
     Indication: GASTROINTESTINAL STROMAL TUMOUR
     Dosage: 400 MG, QD
  3. GLEEVEC [Suspect]
     Dosage: 600 MG, UNK
     Dates: start: 20100601

REACTIONS (12)
  - NEOPLASM PROGRESSION [None]
  - EYE DISCHARGE [None]
  - ABDOMINAL DISCOMFORT [None]
  - LACRIMATION INCREASED [None]
  - HEPATIC NEOPLASM MALIGNANT [None]
  - GENERAL PHYSICAL HEALTH DETERIORATION [None]
  - BLINDNESS [None]
  - NEOPLASM MALIGNANT [None]
  - HEPATIC NEOPLASM [None]
  - RETINAL DETACHMENT [None]
  - MYOPIA [None]
  - COLORECTAL CANCER [None]
